FAERS Safety Report 24773806 (Version 1)
Quarter: 2024Q4

REPORT INFORMATION
  Report Type: Report from Study
  Country: CA (occurrence: CA)
  Receive Date: 20241225
  Receipt Date: 20241225
  Transmission Date: 20250115
  Serious: Yes (Other)
  Sender: REGENERON
  Company Number: CA-BAYER-2024A181868

PATIENT
  Sex: Female

DRUGS (1)
  1. EYLEA [Suspect]
     Active Substance: AFLIBERCEPT
     Indication: Age-related macular degeneration
     Dosage: 2 MG, SOLUTION FOR INJECTION, 40 MG/ML
     Route: 031
     Dates: start: 20241218

REACTIONS (1)
  - Intra-ocular injection complication [Recovered/Resolved]

NARRATIVE: CASE EVENT DATE: 20241218
